FAERS Safety Report 10900614 (Version 1)
Quarter: 2015Q1

REPORT INFORMATION
  Report Type: Spontaneous
  Country: US (occurrence: None)
  Receive Date: 20150303
  Receipt Date: 20150303
  Transmission Date: 20150721
  Serious: Yes (Other)
  Sender: FDA-Public Use
  Company Number: None

PATIENT
  Age: 79 Year
  Sex: Female

DRUGS (1)
  1. STIVARGA [Suspect]
     Active Substance: REGORAFENIB
     Indication: NEOPLASM MALIGNANT
     Route: 048
     Dates: start: 20121206, end: 20150201

REACTIONS (4)
  - Dry skin [None]
  - Drug ineffective [None]
  - Wound [None]
  - Skin exfoliation [None]

NARRATIVE: CASE EVENT DATE: 20150201
